FAERS Safety Report 6729945-4 (Version None)
Quarter: 2010Q2

REPORT INFORMATION
  Report Type: 
  Country: None (occurrence: None)
  Receive Date: 20100518
  Receipt Date: 20100514
  Transmission Date: 20101027
  Serious: Yes (Death)
  Sender: FDA-Public Use
  Company Number: CN-ASTRAZENECA-2010SE20770

PATIENT
  Age: 30 Year
  Sex: Female

DRUGS (9)
  1. SEROQUEL [Suspect]
     Indication: BIPOLAR DISORDER
     Route: 048
     Dates: start: 20100416, end: 20100416
  2. SEROQUEL [Suspect]
     Route: 048
     Dates: start: 20100417, end: 20100417
  3. SEROQUEL [Suspect]
     Route: 048
     Dates: start: 20100418
  4. SEROQUEL [Suspect]
     Route: 048
     Dates: start: 20100420
  5. SEROQUEL [Suspect]
     Route: 048
     Dates: start: 20100422
  6. SEROQUEL [Suspect]
     Route: 048
     Dates: start: 20100424
  7. SODIUM VALPROATE [Concomitant]
     Route: 065
     Dates: start: 20100420, end: 20100427
  8. HALOPERIDOLE [Concomitant]
     Route: 065
     Dates: start: 20100420, end: 20100426
  9. CHINESE MEDICINE (FOR NUTRITION OF BRAIN CELL) [Concomitant]
     Route: 065
     Dates: start: 20100420, end: 20100426

REACTIONS (1)
  - RESPIRATORY FAILURE [None]
